FAERS Safety Report 5928692-6 (Version None)
Quarter: 2008Q4

REPORT INFORMATION
  Report Type: 
  Country: None (occurrence: None)
  Receive Date: 20080923
  Receipt Date: 20080702
  Transmission Date: 20090506
  Serious: Yes (Hospitalization)
  Sender: FDA-Public Use
  Company Number: WAES 0807USA00635

PATIENT
  Age: 67 Year
  Sex: Female

DRUGS (8)
  1. VYTORIN [Suspect]
     Indication: BLOOD CHOLESTEROL
     Dosage: 10-40 MG/DAILY/PO
     Route: 048
  2. VYTORIN [Suspect]
     Indication: BLOOD CHOLESTEROL
     Dosage: 10-80 MG/DAILY/PO
     Route: 048
  3. DIOVAN [Concomitant]
  4. LEVOXYL [Concomitant]
  5. LYRICA [Concomitant]
  6. ULTRAM ER [Concomitant]
  7. VAGIFEM [Concomitant]
  8. VITAMINS [Concomitant]

REACTIONS (1)
  - HEPATIC ENZYME INCREASED [None]
